FAERS Safety Report 7906461-5 (Version None)
Quarter: 2011Q4

REPORT INFORMATION
  Report Type: 
  Country: None (occurrence: None)
  Receive Date: 20111109
  Receipt Date: 20111109
  Transmission Date: 20120403
  Serious: Yes (Hospitalization, Other)
  Sender: FDA-Public Use
  Company Number: None

PATIENT
  Age: 48 Year
  Sex: Female
  Weight: 60.782 kg

DRUGS (4)
  1. IPILIMUMAB [Suspect]
     Indication: METASTATIC MALIGNANT MELANOMA
     Dosage: 3 MG/KG Q3WX4, Q3M, IV
     Route: 042
     Dates: start: 20110810
  2. BEVACIZUMAB [Suspect]
     Indication: METASTATIC MALIGNANT MELANOMA
     Dosage: 15 MG/KG Q3W, IV
     Route: 042
     Dates: start: 20110810
  3. MULTI-VITAMIN [Concomitant]
  4. VIACTIV [Concomitant]

REACTIONS (4)
  - ADRENAL CYST [None]
  - ERUCTATION [None]
  - VOMITING [None]
  - ABDOMINAL PAIN UPPER [None]
